FAERS Safety Report 23594238 (Version 2)
Quarter: 2024Q1

REPORT INFORMATION
  Report Type: Spontaneous
  Country: AU (occurrence: AU)
  Receive Date: 20240305
  Receipt Date: 20240311
  Transmission Date: 20240409
  Serious: Yes (Life-Threatening, Hospitalization, Other)
  Sender: FDA-Public Use
  Company Number: AU-CELLTRION INC.-2024AU005220

PATIENT

DRUGS (1)
  1. INFLECTRA [Suspect]
     Active Substance: INFLIXIMAB-DYYB
     Indication: Colitis ulcerative
     Route: 041

REACTIONS (2)
  - Visceral leishmaniasis [Recovered/Resolved]
  - Haemophagocytic lymphohistiocytosis [Recovered/Resolved]
